FAERS Safety Report 21274054 (Version 4)
Quarter: 2024Q3

REPORT INFORMATION
  Report Type: Report from Study
  Country: CN (occurrence: CN)
  Receive Date: 20220831
  Receipt Date: 20240831
  Transmission Date: 20241017
  Serious: Yes (Hospitalization, Other)
  Sender: TAKEDA
  Company Number: CN-TAKEDA-2022TUS059498

PATIENT
  Age: 57 Year
  Sex: Male
  Weight: 60 kg

DRUGS (8)
  1. VEDOLIZUMAB [Suspect]
     Active Substance: VEDOLIZUMAB
     Indication: Colitis ulcerative
     Dosage: 300 MILLIGRAM
     Route: 042
     Dates: start: 20220316
  2. MESALAMINE [Concomitant]
     Active Substance: MESALAMINE
     Indication: Inflammatory bowel disease
     Dosage: 400 MILLIGRAM, QOD
     Route: 050
     Dates: start: 20210224
  3. MESALAMINE [Concomitant]
     Active Substance: MESALAMINE
     Dosage: 500 MILLIGRAM
     Route: 054
     Dates: start: 20220721
  4. MESALAMINE [Concomitant]
     Active Substance: MESALAMINE
     Dosage: 100 MILLIGRAM, QOD
     Route: 048
     Dates: start: 20220721
  5. PREDNISONE ACETATE [Concomitant]
     Active Substance: PREDNISONE ACETATE
     Indication: Inflammatory bowel disease
     Dosage: 55 MILLIGRAM, QD
     Route: 048
     Dates: start: 20210314
  6. BACILLUS LICHENIFORMIS CAPSULE,LIVE [Concomitant]
     Indication: Inflammatory bowel disease
     Dosage: UNK
     Dates: start: 20210310, end: 20210316
  7. BACILLUS LICHENIFORMIS CAPSULE,LIVE [Concomitant]
     Dosage: 500 MILLIGRAM, TID
     Route: 048
     Dates: start: 20220721
  8. SACCHAROMYCES CEREVISIAE [Concomitant]
     Active Substance: SACCHAROMYCES CEREVISIAE
     Indication: Inflammatory bowel disease
     Dosage: 250 MILLIGRAM, TID
     Route: 048
     Dates: start: 20220721

REACTIONS (1)
  - Colitis ulcerative [Recovered/Resolved]

NARRATIVE: CASE EVENT DATE: 20220707
